FAERS Safety Report 9963615 (Version 1)
Quarter: 2014Q1

REPORT INFORMATION
  Report Type: Report from Study
  Country: US (occurrence: US)
  Receive Date: 20140305
  Receipt Date: 20140305
  Transmission Date: 20141002
  Serious: No
  Sender: FDA-Public Use
  Company Number: US-ABBVIE-13P-163-1118553-00

PATIENT
  Age: 46 Year
  Sex: Male

DRUGS (17)
  1. HUMIRA [Suspect]
     Indication: COLITIS ULCERATIVE
     Dates: start: 20130204
  2. HUMIRA [Suspect]
     Dates: start: 20130325, end: 20130701
  3. PREDNISONE [Concomitant]
     Indication: COLITIS ULCERATIVE
  4. IMURAN [Concomitant]
     Indication: COLITIS ULCERATIVE
  5. PREVACID [Concomitant]
     Indication: DYSPEPSIA
  6. ACTONEL [Concomitant]
     Indication: BONE DISORDER
  7. AXIRON [Concomitant]
     Indication: PRODUCT USED FOR UNKNOWN INDICATION
     Dosage: AS NEEDED UNDER ARMS
     Route: 061
  8. XANAX [Concomitant]
     Indication: PRODUCT USED FOR UNKNOWN INDICATION
  9. ZOLOFT [Concomitant]
     Indication: DEPRESSION
  10. ZOLOFT [Concomitant]
     Indication: ANXIETY
  11. PRAMIPEXOLE [Concomitant]
     Indication: RESTLESS LEGS SYNDROME
     Dosage: 1-2 TABS AT BEDTIME
  12. ZOLPIDEM [Concomitant]
     Indication: PRODUCT USED FOR UNKNOWN INDICATION
     Dosage: AT BEDTIME
  13. TOPIRAMATE [Concomitant]
     Indication: MIGRAINE
  14. TRAMADOL [Concomitant]
     Indication: ANKYLOSING SPONDYLITIS
  15. MULTIVITAMIN [Concomitant]
     Indication: PRODUCT USED FOR UNKNOWN INDICATION
  16. BYSTOLIC [Concomitant]
     Indication: HYPERTENSION
  17. MICARDIS [Concomitant]
     Indication: HYPERTENSION

REACTIONS (1)
  - Drug ineffective [Not Recovered/Not Resolved]
